FAERS Safety Report 7362598-3 (Version None)
Quarter: 2011Q1

REPORT INFORMATION
  Report Type: 
  Country: None (occurrence: None)
  Receive Date: 20110320
  Receipt Date: 20100927
  Transmission Date: 20110831
  Serious: Yes (Hospitalization, Other)
  Sender: FDA-Public Use
  Company Number: US-BAYER-201033812NA

PATIENT
  Sex: Female
  Weight: 61.224 kg

DRUGS (27)
  1. YAZ [Suspect]
     Indication: CONTRACEPTION
     Dosage: UNK
     Route: 048
     Dates: start: 20080101, end: 20090101
  2. ZITHROMAX [Concomitant]
     Dosage: 250 MG, UNK
     Dates: start: 20060516
  3. CEPHALEXIN [Concomitant]
     Dosage: 500 MG, UNK
     Dates: start: 20060424, end: 20080104
  4. SONATA [Concomitant]
     Dosage: 10 MG, UNK
  5. UNCODEABLE ^UNCLASSIFIABLE^ [Concomitant]
  6. HYDROCODONE BITARTRATE AND ACETAMINOPHEN [Concomitant]
     Dosage: Q4-6 HRS
  7. ADVIL LIQUI-GELS [Concomitant]
  8. PHENTERMINE [Concomitant]
     Dosage: 37.5 MG, QD
  9. NYSTATIN / TRIAMCINOLONE [Concomitant]
  10. CLINDAMYCIN [Concomitant]
  11. ADDERALL 10 [Concomitant]
     Indication: ATTENTION DEFICIT/HYPERACTIVITY DISORDER
     Dosage: 20 MG, UNK
     Dates: start: 20060101, end: 20090101
  12. ACYCLOVIR [Concomitant]
     Indication: ORAL HERPES
     Dosage: 800 MG, UNK
     Dates: start: 20040101
  13. BACTRIM [Concomitant]
     Indication: CYSTITIS
     Dosage: UNK
     Dates: start: 20070101
  14. AMOXICILLIN [Concomitant]
     Dosage: 500 MG, UNK
     Dates: start: 20060103
  15. UNCODEABLE ^UNCLASSIFIABLE^ [Concomitant]
     Dosage: 1-2 Q4-6 HOURS
  16. YASMIN [Suspect]
     Indication: CONTRACEPTION
     Dosage: UNK
     Route: 048
     Dates: start: 20000101, end: 20080101
  17. PREDNISONE [Concomitant]
     Dosage: 20 MG, UNK
     Dates: start: 20060516
  18. FAMVIR [Concomitant]
     Dosage: 500 MG, TID
  19. MOBIC [Concomitant]
     Dosage: 7.5 MG, QD
  20. CIPROFLOXACIN [Concomitant]
     Dosage: 500 MG, BID
     Dates: start: 20070904
  21. TERCONAZOLE [Concomitant]
  22. UNCODEABLE ^UNCLASSIFIABLE^ [Concomitant]
  23. AMBIEN [Concomitant]
     Indication: SLEEP DISORDER THERAPY
     Dosage: UNK
     Dates: start: 20080101, end: 20090101
  24. AMPHETAMINE AND DEXTROAMPHETAMINE SALTS [Concomitant]
     Dosage: 15 MG, UNK
     Dates: start: 20060516, end: 20080728
  25. PROMETHAZINE VC W/CODEINE [CODEINE PHOS,PHENYLEPHR HCL,PROMETHAZ HCL] [Concomitant]
     Dosage: UNK
     Dates: start: 20060516, end: 20080531
  26. SULFATRIM [Concomitant]
     Dosage: 160-800 MG
     Dates: start: 20071018
  27. OCELLA [Suspect]
     Indication: CONTRACEPTION
     Dosage: UNK
     Route: 048
     Dates: start: 20080701, end: 20080701

REACTIONS (5)
  - GASTRITIS [None]
  - NEPHROLITHIASIS [None]
  - INJURY [None]
  - URINARY TRACT INFECTION [None]
  - KIDNEY INFECTION [None]
